FAERS Safety Report 10207612 (Version 1)
Quarter: 2014Q2

REPORT INFORMATION
  Report Type: Spontaneous
  Country: TR (occurrence: TR)
  Receive Date: 20140530
  Receipt Date: 20140530
  Transmission Date: 20141212
  Serious: Yes (Other)
  Sender: FDA-Public Use
  Company Number: TR-WATSON-2014-10938

PATIENT
  Age: 36 Year
  Sex: Female

DRUGS (1)
  1. TETRACYCLINE (UNKNOWN) [Suspect]
     Indication: ACNE
     Dosage: UNKNOWN
     Route: 048

REACTIONS (1)
  - Oesophageal ulcer [Recovered/Resolved]
